FAERS Safety Report 7208149-5 (Version None)
Quarter: 2010Q4

REPORT INFORMATION
  Report Type: 
  Country: None (occurrence: None)
  Receive Date: 20101126
  Receipt Date: 20100913
  Transmission Date: 20110411
  Serious: Yes (Other)
  Sender: FDA-Public Use
  Company Number: 314754

PATIENT
  Sex: Male

DRUGS (2)
  1. VICTOZA [Suspect]
     Indication: TYPE 2 DIABETES MELLITUS
     Dosage: 0.6 MG, QD, SUBCUTANEOUS ; 1.2 MG, QD
     Route: 058
  2. GLUCOPHAGE /00082701/ (METFORMIN) [Concomitant]

REACTIONS (1)
  - PANCREATITIS [None]
